FAERS Safety Report 7749063-6 (Version None)
Quarter: 2011Q3

REPORT INFORMATION
  Report Type: 
  Country: None (occurrence: None)
  Receive Date: 20110914
  Receipt Date: 20110906
  Transmission Date: 20111222
  Serious: Yes (Other)
  Sender: FDA-Public Use
  Company Number: BE-JNJFOC-20110610952

PATIENT
  Age: 14 Year
  Sex: Female

DRUGS (7)
  1. DEMEROL [Suspect]
     Indication: GASTROINTESTINAL INFECTION
     Route: 065
  2. DIPROPHOS [Concomitant]
     Route: 065
  3. MIDAZOLAM HCL [Concomitant]
     Route: 065
  4. LEVOFLOXACIN [Suspect]
     Indication: DIARRHOEA
     Route: 042
  5. ANTISPASMODICS/ ANTICHOLINERGICS [Concomitant]
     Route: 065
  6. LEVOFLOXACIN [Suspect]
     Indication: GASTROINTESTINAL INFECTION
     Route: 042
  7. SCOPOLAMINE [Concomitant]

REACTIONS (7)
  - DIPLEGIA [None]
  - FATIGUE [None]
  - PARAESTHESIA [None]
  - PYREXIA [None]
  - MUSCLE ATROPHY [None]
  - MICTURITION DISORDER [None]
  - DYSPHAGIA [None]
